FAERS Safety Report 17861242 (Version 1)
Quarter: 2020Q2

REPORT INFORMATION
  Report Type: Spontaneous
  Country: US (occurrence: US)
  Receive Date: 20200604
  Receipt Date: 20200604
  Transmission Date: 20200714
  Serious: No
  Sender: FDA-Public Use
  Company Number: US-HARMONY BIOSCIENCES-2020HMY00254

PATIENT
  Sex: Female

DRUGS (1)
  1. WAKIX [Suspect]
     Active Substance: PITOLISANT HYDROCHLORIDE
     Dosage: 17.8 MG, 1X/DAY

REACTIONS (1)
  - Abdominal discomfort [Unknown]
